FAERS Safety Report 25989166 (Version 1)
Quarter: 2025Q4

REPORT INFORMATION
  Report Type: Spontaneous
  Country: CN (occurrence: CN)
  Receive Date: 20251103
  Receipt Date: 20251103
  Transmission Date: 20260118
  Serious: Yes (Other)
  Sender: BAXTER
  Company Number: None

PATIENT
  Age: 40 Year
  Sex: Female
  Weight: 47 kg

DRUGS (4)
  1. CYCLOPHOSPHAMIDE [Suspect]
     Active Substance: CYCLOPHOSPHAMIDE
     Indication: Breast cancer female
     Dosage: 0.8 G, QD
     Route: 041
     Dates: start: 20250807, end: 20250807
  2. SODIUM CHLORIDE [Suspect]
     Active Substance: SODIUM CHLORIDE
     Dosage: 0.9% NS 100 ML, QD (WITH CYCLOPHOSPHAMIDE)
     Route: 041
     Dates: start: 20250807, end: 20250807
  3. SODIUM CHLORIDE [Suspect]
     Active Substance: SODIUM CHLORIDE
     Dosage: 0.9% NS 250 ML, QD (WITH DOCETAXEL)
     Route: 041
     Dates: start: 20250807, end: 20250807
  4. DOCETAXEL [Suspect]
     Active Substance: DOCETAXEL
     Indication: Breast cancer female
     Dosage: 110 G, QD
     Route: 041
     Dates: start: 20250807, end: 20250807

REACTIONS (6)
  - Myelosuppression [Unknown]
  - Phlebitis [Recovering/Resolving]
  - Pain in extremity [Unknown]
  - Axillary pain [Unknown]
  - Axillary mass [Unknown]
  - White blood cell count decreased [Recovering/Resolving]

NARRATIVE: CASE EVENT DATE: 20250808
